FAERS Safety Report 6474846-2 (Version None)
Quarter: 2009Q4

REPORT INFORMATION
  Report Type: 
  Country: None (occurrence: None)
  Receive Date: 20091204
  Receipt Date: 20090325
  Transmission Date: 20100525
  Serious: Yes (Hospitalization)
  Sender: FDA-Public Use
  Company Number: US-ELI_LILLY_AND_COMPANY-US200902004439

PATIENT
  Age: 76 Year
  Sex: Female

DRUGS (8)
  1. FORTEO [Suspect]
     Dosage: 20 UG, DAILY (1/D)
     Dates: start: 20090217, end: 20090217
  2. COUMADIN [Concomitant]
  3. PRILOSEC [Concomitant]
  4. ASPIRIN [Concomitant]
  5. PREMPRO [Concomitant]
  6. MULTI-VITAMIN [Concomitant]
  7. VICODIN [Concomitant]
  8. CALCIUM [Concomitant]

REACTIONS (2)
  - ANXIETY [None]
  - CHEST PAIN [None]
